FAERS Safety Report 22017104 (Version 2)
Quarter: 2023Q1

REPORT INFORMATION
  Report Type: Report from Study
  Country: GB (occurrence: GB)
  Receive Date: 20230221
  Receipt Date: 20230224
  Transmission Date: 20230418
  Serious: Yes (Life-Threatening, Hospitalization, Other)
  Sender: FDA-Public Use
  Company Number: GB-Eisai Medical Research-EC-2023-134209

PATIENT
  Age: 49 Year
  Sex: Female
  Weight: 43.1 kg

DRUGS (2)
  1. PEMBROLIZUMAB [Suspect]
     Active Substance: PEMBROLIZUMAB
     Indication: Endometrial cancer metastatic
     Dosage: 200 MILLIGRAM, Q3W
     Route: 042
     Dates: start: 20220915, end: 20230103
  2. LENVATINIB MESYLATE [Suspect]
     Active Substance: LENVATINIB MESYLATE
     Indication: Endometrial cancer metastatic
     Dosage: 20 MILLIGRAM, QD
     Route: 048
     Dates: start: 20220915, end: 20230107

REACTIONS (5)
  - Cardiac ventricular thrombosis [Recovering/Resolving]
  - Enterocolitis [Recovering/Resolving]
  - Hypoglycaemia [Recovered/Resolved]
  - Acute kidney injury [Recovering/Resolving]
  - Pulmonary embolism [Unknown]

NARRATIVE: CASE EVENT DATE: 20230101
